FAERS Safety Report 8956483 (Version 1)
Quarter: 2012Q4

REPORT INFORMATION
  Report Type: 
  Country: CN (occurrence: CN)
  Receive Date: 20121210
  Receipt Date: 20121210
  Transmission Date: 20130627
  Serious: Yes (Other)
  Sender: FDA-Public Use
  Company Number: CN-PFIZER INC-2012305180

PATIENT
  Age: 62 Year
  Sex: Male

DRUGS (1)
  1. DIFLUCAN [Suspect]
     Indication: FEVER

REACTIONS (2)
  - Aspergillosis [Unknown]
  - Chills [Unknown]
